FAERS Safety Report 23026321 (Version 2)
Quarter: 2023Q4

REPORT INFORMATION
  Report Type: Spontaneous
  Country: NL (occurrence: NL)
  Receive Date: 20231004
  Receipt Date: 20231018
  Transmission Date: 20240110
  Serious: Yes (Congenital Anomaly, Other)
  Sender: FDA-Public Use
  Company Number: None

PATIENT

DRUGS (2)
  1. PAROXETINE [Suspect]
     Active Substance: PAROXETINE
     Indication: Depression
     Dosage: 20 MG, ONCE PER DAY
     Route: 064
     Dates: start: 19990101
  2. PAROXETINE [Suspect]
     Active Substance: PAROXETINE
     Indication: Anxiety

REACTIONS (2)
  - Talipes [Not Recovered/Not Resolved]
  - Maternal exposure during pregnancy [Unknown]
